FAERS Safety Report 23467337 (Version 1)
Quarter: 2024Q1

REPORT INFORMATION
  Report Type: Spontaneous
  Country: CN (occurrence: CN)
  Receive Date: 20240201
  Receipt Date: 20240201
  Transmission Date: 20240410
  Serious: Yes (Other)
  Sender: FDA-Public Use
  Company Number: CN-PFIZER INC-PV202400013729

PATIENT
  Age: 32 Year
  Sex: Female
  Weight: 55 kg

DRUGS (1)
  1. METHOTREXATE SODIUM [Suspect]
     Active Substance: METHOTREXATE SODIUM
     Indication: Abortion induced
     Dosage: 50 MG, ALTERNATE DAY
     Route: 030
     Dates: start: 20240109, end: 20240116

REACTIONS (2)
  - Off label use [Recovered/Resolved]
  - Liver injury [Recovered/Resolved]

NARRATIVE: CASE EVENT DATE: 20240109
